FAERS Safety Report 21788057 (Version 1)
Quarter: 2022Q4

REPORT INFORMATION
  Report Type: Spontaneous
  Country: CN (occurrence: CN)
  Receive Date: 20221228
  Receipt Date: 20221228
  Transmission Date: 20230113
  Serious: Yes (Other)
  Sender: FDA-Public Use
  Company Number: CN-009507513-2212CHN007298

PATIENT
  Age: 9 Year
  Sex: Male

DRUGS (17)
  1. TEMOZOLOMIDE [Suspect]
     Active Substance: TEMOZOLOMIDE
     Indication: Neuroblastoma
     Dosage: 4 IVT (IRINOTECAN, VINCRISTINE, AND TEMOZOLOMIDE) INDUCTION CHEMOTHERAPY COURSES
     Route: 048
  2. TEMOZOLOMIDE [Suspect]
     Active Substance: TEMOZOLOMIDE
     Dosage: 3 IVT (IRINOTECAN, VINCRISTINE, AND TEMOZOLOMIDE) REINDUCTION CHEMOTHERAPY COURSES COMBINED WITH ARS
  3. IRINOTECAN [Concomitant]
     Active Substance: IRINOTECAN
     Indication: Neuroblastoma
     Dosage: 4 IVT (IRINOTECAN, VINCRISTINE, AND TEMOZOLOMIDE) INDUCTION CHEMOTHERAPY COURSES
  4. IRINOTECAN [Concomitant]
     Active Substance: IRINOTECAN
     Dosage: 3 IVT (IRINOTECAN, VINCRISTINE, AND TEMOZOLOMIDE) REINDUCTION CHEMOTHERAPY COURSES COMBINED WITH ARS
  5. VINCRISTINE [Concomitant]
     Active Substance: VINCRISTINE
     Indication: Neuroblastoma
     Dosage: 4 IVT (IRINOTECAN, VINCRISTINE, AND TEMOZOLOMIDE) INDUCTION CHEMOTHERAPY COURSES
  6. VINCRISTINE [Concomitant]
     Active Substance: VINCRISTINE
     Dosage: 3 IVT (IRINOTECAN, VINCRISTINE, AND TEMOZOLOMIDE) REINDUCTION CHEMOTHERAPY COURSES COMBINED WITH ARS
  7. VINCRISTINE [Concomitant]
     Active Substance: VINCRISTINE
     Dosage: 0.022 MG/KG OR 0.67 MG/M2 DAILY FOR 2 H ON DAYS 1 AND 2; 2 CPV (VINCRISTINE, PIRARUBICIN AND CYCLOPH
  8. PIRARUBICIN [Concomitant]
     Active Substance: PIRARUBICIN
     Indication: Neuroblastoma
     Dosage: 25 MILLIGRAM/SQ. METER OVER3 H: 2 CPV (VINCRISTINE, PIRARUBICIN AND CYCLOPHOSPHAMIDE) INDUCTION CHEM
  9. CYCLOPHOSPHAMIDE [Concomitant]
     Active Substance: CYCLOPHOSPHAMIDE
     Indication: Neuroblastoma
     Dosage: 1.2 GRAM PER SQUARE METRE FOR 3 H DAILY ON DAYS 1-3; 2 CPV (VINCRISTINE, PIRARUBICIN AND CYCLOPHOSPH
  10. CYCLOPHOSPHAMIDE [Concomitant]
     Active Substance: CYCLOPHOSPHAMIDE
     Dosage: 1.2 GRAM PER SQUARE METRE FOR 3 H DAILY ON DAYS 1 TO 2; 2 CT (CYCLOPHOSPHAMIDE AND TOPOTECAN) INDUCT
  11. CYCLOPHOSPHAMIDE [Concomitant]
     Active Substance: CYCLOPHOSPHAMIDE
     Dosage: 1 CD (CYCLOPHOSPHAMIDE AND DACARBAZINE)REINDUCTION CHEMOTHERAPY COURSE
  12. TOPOTECAN [Concomitant]
     Active Substance: TOPOTECAN HYDROCHLORIDE
     Indication: Neuroblastoma
     Dosage: (LIGHT-RESISTANT, 2 G/M2) DAILY AS A CONTINUOUS INFUSION OVER DAYS 1 TO 3 (72 H DURATION OF ADMINIST
  13. GEMCITABINE [Concomitant]
     Active Substance: GEMCITABINE
     Indication: Neuroblastoma
     Dosage: 2 GO (GEMCITABINE AND OXALIPLATIN) INDUCTION CHEMOTHERAPY COURSES
  14. OXALIPLATIN [Concomitant]
     Active Substance: OXALIPLATIN
     Indication: Neuroblastoma
     Dosage: 2 GO (GEMCITABINE AND OXALIPLATIN) INDUCTION CHEMOTHERAPY COURSES
  15. DACARBAZINE [Concomitant]
     Active Substance: DACARBAZINE
     Indication: Neuroblastoma
     Dosage: 1 CD (CYCLOPHOSPHAMIDE AND DACARBAZINE)REINDUCTION CHEMOTHERAPY COURSE
  16. DACARBAZINE [Concomitant]
     Active Substance: DACARBAZINE
     Dosage: 5 DECITABINE CHEMOTHERAPY COURSES
  17. ARSENIC TRIOXIDE [Concomitant]
     Active Substance: ARSENIC TRIOXIDE
     Indication: Neuroblastoma
     Dosage: 0.16 MG/KG/DAY
     Route: 042

REACTIONS (4)
  - Hypokalaemia [Unknown]
  - Neutrophil count [Unknown]
  - Nausea [Unknown]
  - Product use in unapproved indication [Unknown]
